FAERS Safety Report 10596168 (Version 2)
Quarter: 2014Q4

REPORT INFORMATION
  Report Type: Spontaneous
  Country: GB (occurrence: GB)
  Receive Date: 20141120
  Receipt Date: 20141120
  Transmission Date: 20150529
  Serious: Yes (Other)
  Sender: FDA-Public Use
  Company Number: GB-ACTAVIS-2014-05186

PATIENT
  Sex: Female

DRUGS (4)
  1. DOXORUBICIN (UNKNOWN) [Suspect]
     Active Substance: DOXORUBICIN
     Indication: OSTEOSARCOMA
     Dosage: 75 MG/M2, CYCLICAL,  EVERY FIVE WEEKS
     Route: 065
  2. METHOTREXATE [Concomitant]
     Active Substance: METHOTREXATE
     Indication: OSTEOSARCOMA
     Dosage: 12000 MG/M2, CYCLICAL, ON DAYS22 AND 29
     Route: 065
  3. MEPACT [Suspect]
     Active Substance: MIFAMURTIDE
     Indication: OSTEOSARCOMA
     Dosage: UNK
     Route: 065
  4. CISPLATIN. [Concomitant]
     Active Substance: CISPLATIN
     Indication: OSTEOSARCOMA
     Dosage: 120 MG/M2, CYCLICAL, EVERY FIVE WEEKS
     Route: 065

REACTIONS (5)
  - Diarrhoea [Unknown]
  - Bone marrow failure [Unknown]
  - Thrombocytopenia [Recovering/Resolving]
  - Neutropenic sepsis [Unknown]
  - Mucosal inflammation [Unknown]
